FAERS Safety Report 6093125-9 (Version None)
Quarter: 2009Q1

REPORT INFORMATION
  Report Type: 
  Country: None (occurrence: None)
  Receive Date: 20090226
  Receipt Date: 20090216
  Transmission Date: 20090719
  Serious: Yes (Other)
  Sender: FDA-Public Use
  Company Number: JP-JNJFOC-20090203042

PATIENT
  Age: 72 Year
  Sex: Male

DRUGS (4)
  1. FENTANYL CITRATE [Suspect]
     Dosage: USED 6.25UG/HR
     Route: 062
  2. FENTANYL CITRATE [Suspect]
     Route: 062
  3. FENTANYL CITRATE [Suspect]
     Route: 062
  4. FENTANYL CITRATE [Suspect]
     Indication: CANCER PAIN
     Route: 062

REACTIONS (5)
  - ANXIETY [None]
  - DYSPNOEA [None]
  - HEADACHE [None]
  - MALAISE [None]
  - WRONG TECHNIQUE IN DRUG USAGE PROCESS [None]
